FAERS Safety Report 7283377-1 (Version None)
Quarter: 2011Q1

REPORT INFORMATION
  Report Type: 
  Country: None (occurrence: None)
  Receive Date: 20110209
  Receipt Date: 20100707
  Transmission Date: 20110831
  Serious: No
  Sender: FDA-Public Use
  Company Number: A0870294A

PATIENT
  Sex: Female

DRUGS (1)
  1. PAXIL [Suspect]
     Dosage: 10MG PER DAY
     Route: 048

REACTIONS (4)
  - CRYING [None]
  - PARAESTHESIA [None]
  - WITHDRAWAL SYNDROME [None]
  - CONFUSIONAL STATE [None]
